FAERS Safety Report 12155786 (Version 5)
Quarter: 2017Q4

REPORT INFORMATION
  Report Type: Spontaneous
  Country: DE (occurrence: DE)
  Receive Date: 20160307
  Receipt Date: 20171208
  Transmission Date: 20180320
  Serious: Yes (Life-Threatening, Hospitalization)
  Sender: FDA-Public Use
  Company Number: DE-B.I. PHARMACEUTICALS,INC./RIDGEFIELD-2016-BI-13595DE

PATIENT
  Age: 71 Year
  Sex: Male
  Weight: 70 kg

DRUGS (1)
  1. PRADAXA [Suspect]
     Active Substance: DABIGATRAN ETEXILATE MESYLATE
     Indication: ATRIAL FIBRILLATION
     Dosage: DAILY DOSE: 300 MG MILLIGRAM(S) EVERY DAY
     Route: 048

REACTIONS (7)
  - Epilepsy [Unknown]
  - Hydrocephalus [Unknown]
  - Loss of consciousness [Unknown]
  - Subarachnoid haemorrhage [Not Recovered/Not Resolved]
  - Disturbance in attention [Unknown]
  - Pneumonia aspiration [Unknown]
  - Confusional state [Unknown]

NARRATIVE: CASE EVENT DATE: 20160228
